FAERS Safety Report 21003684 (Version 1)
Quarter: 2022Q2

REPORT INFORMATION
  Report Type: Spontaneous
  Country: US (occurrence: US)
  Receive Date: 20220624
  Receipt Date: 20220624
  Transmission Date: 20220721
  Serious: No
  Sender: FDA-Public Use
  Company Number: US-PFIZER INC-PV202200007927

PATIENT
  Age: 59 Year
  Sex: Female

DRUGS (2)
  1. XELJANZ XR [Interacting]
     Active Substance: TOFACITINIB CITRATE
     Dosage: 11 MG
  2. LEFLUNOMIDE [Interacting]
     Active Substance: LEFLUNOMIDE

REACTIONS (3)
  - Potentiating drug interaction [Unknown]
  - Pyrexia [Unknown]
  - Hyperhidrosis [Unknown]
